FAERS Safety Report 25803030 (Version 1)
Quarter: 2025Q3

REPORT INFORMATION
  Report Type: Spontaneous
  Country: US (occurrence: US)
  Receive Date: 20250915
  Receipt Date: 20250915
  Transmission Date: 20251020
  Serious: No
  Sender: SAREPTA THERAPEUTICS
  Company Number: US-SAREPTA THERAPEUTICS INC.-SRP2024-005180

PATIENT
  Age: 17 Year
  Sex: Male
  Weight: 62 kg

DRUGS (3)
  1. VYONDYS 53 [Suspect]
     Active Substance: GOLODIRSEN
     Indication: Duchenne muscular dystrophy
     Route: 042
     Dates: end: 20241024
  2. VYONDYS 53 [Suspect]
     Active Substance: GOLODIRSEN
     Route: 042
     Dates: start: 20240809, end: 20241116
  3. VYONDYS 53 [Suspect]
     Active Substance: GOLODIRSEN
     Route: 042
     Dates: start: 20241122

REACTIONS (3)
  - Underdose [Unknown]
  - Product dispensing error [Unknown]
  - No adverse event [Unknown]

NARRATIVE: CASE EVENT DATE: 20240827
